FAERS Safety Report 9516679 (Version 3)
Quarter: 2013Q4

REPORT INFORMATION
  Report Type: Spontaneous
  Country: GB (occurrence: GB)
  Receive Date: 20130911
  Receipt Date: 20131010
  Transmission Date: 20140711
  Serious: Yes (Other)
  Sender: FDA-Public Use
  Company Number: GB-JNJFOC-20130902721

PATIENT
  Sex: 0

DRUGS (6)
  1. DOXORUBICIN HYDROCHLORIDE [Suspect]
     Indication: MANTLE CELL LYMPHOMA
     Route: 042
  2. DOXORUBICIN [Suspect]
     Indication: MANTLE CELL LYMPHOMA
     Route: 065
  3. BORTEZOMIB [Suspect]
     Indication: MANTLE CELL LYMPHOMA
     Dosage: ON DAYS 1 AND 8 OF STANDARD CHOP CHEMOTHERAPY
     Route: 065
  4. CYCLOPHOSPHAMIDE [Suspect]
     Indication: MANTLE CELL LYMPHOMA
     Route: 065
  5. VINCRISTINE [Suspect]
     Indication: MANTLE CELL LYMPHOMA
     Route: 065
  6. PREDNISOLONE [Suspect]
     Indication: MANTLE CELL LYMPHOMA
     Route: 065

REACTIONS (4)
  - Febrile neutropenia [Unknown]
  - Peripheral motor neuropathy [Unknown]
  - Neutropenia [Unknown]
  - Peripheral sensory neuropathy [Unknown]
